FAERS Safety Report 7586144-4 (Version None)
Quarter: 2011Q2

REPORT INFORMATION
  Report Type: 
  Country: None (occurrence: None)
  Receive Date: 20110603
  Receipt Date: 20110210
  Transmission Date: 20111010
  Serious: Yes (Other)
  Sender: FDA-Public Use
  Company Number: CTI_01311_2011

PATIENT
  Age: 40 Year
  Sex: Female

DRUGS (1)
  1. FACTIVE [Suspect]
     Indication: PRODUCT USED FOR UNKNOWN INDICATION
     Dosage: (DF)

REACTIONS (2)
  - ANAPHYLACTIC REACTION [None]
  - RASH GENERALISED [None]
